FAERS Safety Report 4492851-2 (Version None)
Quarter: 2004Q4

REPORT INFORMATION
  Report Type: 
  Country: None (occurrence: None)
  Receive Date: 20041102
  Receipt Date: 20041025
  Transmission Date: 20050328
  Serious: Yes (Life-Threatening, Hospitalization, Other)
  Sender: FDA-Public Use
  Company Number: FRWYE140325OCT04

PATIENT
  Age: 61 Year
  Sex: Female

DRUGS (5)
  1. SOPROL (BISOPROLOL, TABLET, 0) [Suspect]
     Dosage: 10 MG 1 X PER 1 DAY, ORAL
     Route: 048
     Dates: end: 20040905
  2. TOCOPHEROX [Concomitant]
  3. ZEFTIX (LAMIVUDINE) [Concomitant]
  4. LASIX [Concomitant]
  5. ADEFOVIR DIPIVOXIL (ADEFOVIR DIPIVOXIL) [Concomitant]

REACTIONS (7)
  - APHASIA [None]
  - ATRIAL FIBRILLATION [None]
  - ISCHAEMIC CEREBRAL INFARCTION [None]
  - MALAISE [None]
  - MYOCARDIAL ISCHAEMIA [None]
  - PULMONARY EMBOLISM [None]
  - TACHYCARDIA [None]
